FAERS Safety Report 13602249 (Version 2)
Quarter: 2017Q3

REPORT INFORMATION
  Report Type: Spontaneous
  Country: US (occurrence: US)
  Receive Date: 20170601
  Receipt Date: 20170713
  Transmission Date: 20171127
  Serious: Yes (Hospitalization)
  Sender: FDA-Public Use
  Company Number: US-ASTRAZENECA-2017SE56067

PATIENT
  Age: 1184 Month
  Sex: Male
  Weight: 68 kg

DRUGS (6)
  1. SODIUM CHLORIDE. [Concomitant]
     Active Substance: SODIUM CHLORIDE
     Indication: HYPONATRAEMIA
     Dosage: 1 G UNKNOWN (MONDAY, WEDNESDAYS AND FRIDAY)
     Dates: start: 201702, end: 20170522
  2. SYMBICORT [Suspect]
     Active Substance: BUDESONIDE\FORMOTEROL FUMARATE DIHYDRATE
     Indication: ASTHMA
     Dosage: 80/4.5 MCG, TWO PUFFS TWICE A DAY
     Route: 055
  3. LEVOTHYROXINE. [Concomitant]
     Active Substance: LEVOTHYROXINE
     Indication: THYROID DISORDER
     Route: 048
     Dates: start: 201704
  4. CVS BRAND OF ZANTAC [Concomitant]
     Indication: GASTRIC PH DECREASED
     Route: 048
     Dates: start: 2016
  5. SPIRONOLACTONE. [Concomitant]
     Active Substance: SPIRONOLACTONE
     Indication: HYPONATRAEMIA
     Route: 048
     Dates: start: 20170523
  6. LEVOTHYROXINE. [Concomitant]
     Active Substance: LEVOTHYROXINE
     Indication: THYROID DISORDER
     Dosage: 25 MCG OR 35 MCG
     Route: 048
     Dates: start: 2015

REACTIONS (9)
  - Thyroid disorder [Unknown]
  - Drug dose omission [Unknown]
  - Pain [Unknown]
  - Wrong technique in device usage process [Unknown]
  - Product packaging quantity issue [Unknown]
  - Renal failure [Unknown]
  - Fluid retention [Unknown]
  - Hypothyroidism [Unknown]
  - Hyponatraemia [Unknown]

NARRATIVE: CASE EVENT DATE: 201611
